FAERS Safety Report 13053959 (Version 5)
Quarter: 2017Q4

REPORT INFORMATION
  Report Type: Spontaneous
  Country: PL (occurrence: PL)
  Receive Date: 20161222
  Receipt Date: 20171219
  Transmission Date: 20180320
  Serious: Yes (Other)
  Sender: FDA-Public Use
  Company Number: PL-UNITED THERAPEUTICS-UNT-2016-016798

PATIENT
  Age: 38 Year
  Sex: Male

DRUGS (4)
  1. REMODULIN [Suspect]
     Active Substance: TREPROSTINIL
     Indication: PULMONARY ARTERIAL HYPERTENSION
     Dosage: 0.0368 ?G/KG, CONTINUING
     Route: 041
     Dates: start: 20130119
  2. REMODULIN [Suspect]
     Active Substance: TREPROSTINIL
     Dosage: 0.0368 ?G/KG, CONTINUING
     Route: 041
     Dates: start: 20150810
  3. REMODULIN [Suspect]
     Active Substance: TREPROSTINIL
     Dosage: 0.031 ?G/KG, CONTINUING
     Route: 041
     Dates: start: 20150925
  4. REMODULIN [Suspect]
     Active Substance: TREPROSTINIL
     Dosage: 0.0413 ?G/KG, CONTINUING
     Route: 041

REACTIONS (5)
  - Neck pain [Recovered/Resolved]
  - Drug administration error [Not Recovered/Not Resolved]
  - Product use issue [Unknown]
  - Device dislocation [Recovered/Resolved]
  - Soft tissue swelling [Recovered/Resolved]

NARRATIVE: CASE EVENT DATE: 20150810
